FAERS Safety Report 24987834 (Version 1)
Quarter: 2025Q1

REPORT INFORMATION
  Report Type: Report from Study
  Country: CA (occurrence: CA)
  Receive Date: 20250219
  Receipt Date: 20250219
  Transmission Date: 20250409
  Serious: Yes (Other)
  Sender: ABBVIE
  Company Number: CA-ABBVIE-6130960

PATIENT
  Age: 53 Year
  Sex: Female

DRUGS (2)
  1. SKYRIZI [Suspect]
     Active Substance: RISANKIZUMAB-RZAA
     Indication: Crohn^s disease
     Route: 058
  2. ATIVAN [Concomitant]
     Active Substance: LORAZEPAM
     Indication: Product used for unknown indication
     Route: 065

REACTIONS (10)
  - Hepatic cirrhosis [Unknown]
  - Tremor [Recovered/Resolved]
  - Psoriasis [Unknown]
  - Sciatic nerve injury [Unknown]
  - Back pain [Unknown]
  - Frequent bowel movements [Recovered/Resolved]
  - Peripheral swelling [Unknown]
  - Pleural effusion [Unknown]
  - Ascites [Unknown]
  - Pericardial effusion [Unknown]

NARRATIVE: CASE EVENT DATE: 20230101
